FAERS Safety Report 4382137-9 (Version None)
Quarter: 2004Q2

REPORT INFORMATION
  Report Type: 
  Country: None (occurrence: None)
  Receive Date: 20040617
  Receipt Date: 20031112
  Transmission Date: 20050107
  Serious: Yes (Other)
  Sender: FDA-Public Use
  Company Number: 351739

PATIENT
  Age: 56 Year
  Sex: Female

DRUGS (2)
  1. XENICAL [Suspect]
     Indication: OBESITY
     Dosage: 120 MG 3 PER DAY ORAL
     Route: 048
     Dates: start: 20030815, end: 20031104
  2. XENICAL [Suspect]
     Indication: WEIGHT CONTROL
     Dosage: 120 MG 3 PER DAY ORAL
     Route: 048
     Dates: start: 20030815, end: 20031104

REACTIONS (2)
  - DRUG INEFFECTIVE [None]
  - STEATORRHOEA [None]
